FAERS Safety Report 9963588 (Version 1)
Quarter: 2014Q1

REPORT INFORMATION
  Report Type: Spontaneous
  Country: US (occurrence: US)
  Receive Date: 20140305
  Receipt Date: 20140305
  Transmission Date: 20141002
  Serious: No
  Sender: FDA-Public Use
  Company Number: US-ABBVIE-13P-163-1118330-00

PATIENT
  Age: 52 Year
  Sex: Male
  Weight: 104.42 kg

DRUGS (4)
  1. HUMIRA [Suspect]
     Indication: PSORIASIS
     Dates: start: 2010
  2. METOPROLOL [Concomitant]
     Indication: BLOOD PRESSURE MANAGEMENT
  3. BENICAR [Concomitant]
     Indication: CHOLESTEROSIS
  4. LIVALO [Concomitant]
     Indication: CHOLESTEROSIS

REACTIONS (2)
  - Incorrect dose administered [Unknown]
  - Injection site pain [Recovered/Resolved]
